FAERS Safety Report 21376990 (Version 1)
Quarter: 2022Q3

REPORT INFORMATION
  Report Type: Spontaneous
  Country: FR (occurrence: FR)
  Receive Date: 20220926
  Receipt Date: 20220926
  Transmission Date: 20221027
  Serious: Yes (Hospitalization)
  Sender: FDA-Public Use
  Company Number: None

PATIENT
  Age: 69 Year
  Sex: Male
  Weight: 92.5 kg

DRUGS (21)
  1. BISOPROLOL [Suspect]
     Active Substance: BISOPROLOL
     Indication: Hypertension
     Dosage: 2.5 MILLIGRAM, QD
     Route: 048
     Dates: start: 20220721
  2. RAMIPRIL [Suspect]
     Active Substance: RAMIPRIL
     Indication: Hypertension
     Dosage: 1.25 MILLIGRAM, QD
     Route: 048
     Dates: start: 20220721, end: 20220726
  3. SPIRONOLACTONE [Suspect]
     Active Substance: SPIRONOLACTONE
     Indication: Fluid retention
     Dosage: 50 MILLIGRAM, QD
     Route: 048
     Dates: end: 20220725
  4. POTASSIUM BITARTRATE\SODIUM BICARBONATE [Suspect]
     Active Substance: POTASSIUM BITARTRATE\SODIUM BICARBONATE
     Indication: Product used for unknown indication
     Dosage: 1 DOSAGE FORM, PRN (NECESSARY)
     Route: 054
  5. LANSOPRAZOLE [Concomitant]
     Active Substance: LANSOPRAZOLE
     Dosage: 30 MILLIGRAM, QD
     Route: 048
  6. TOUJEO [Concomitant]
     Active Substance: INSULIN GLARGINE
     Dosage: 32 INTERNATIONAL UNIT, QD
     Route: 058
  7. KARDEGIC [Concomitant]
     Active Substance: ASPIRIN DL-LYSINE
     Dosage: 75 MILLIGRAM, QD
     Route: 048
  8. ATORVASTATIN [Concomitant]
     Active Substance: ATORVASTATIN
     Dosage: 40 MILLIGRAM, QD
     Route: 048
  9. SERETIDE [Concomitant]
     Active Substance: FLUTICASONE PROPIONATE\SALMETEROL XINAFOATE
     Dosage: STRENGTH- 500/50 MICROGRAMMES/DOSE
  10. AMIODARONE [Concomitant]
     Active Substance: AMIODARONE
     Dosage: 200 MILLIGRAM, QD
     Route: 048
  11. POLYETHYLENE GLYCOLS [Concomitant]
     Active Substance: POLYETHYLENE GLYCOLS
     Dosage: 4 DOSAGE FORM, QD
     Route: 048
  12. APIXABAN [Concomitant]
     Active Substance: APIXABAN
     Dosage: 10 MILLIGRAM, QD
     Route: 048
  13. LEVETIRACETAM [Concomitant]
     Active Substance: LEVETIRACETAM
     Dosage: 750 MILLIGRAM, QD
     Route: 058
  14. FOLIC ACID [Concomitant]
     Active Substance: FOLIC ACID
     Dosage: 5 MILLIGRAM, QW
     Route: 048
  15. FUROSEMIDE [Concomitant]
     Active Substance: FUROSEMIDE
     Dosage: 40 MILLIGRAM, QD
     Route: 048
     Dates: end: 20220725
  16. SPIRIVA [Concomitant]
     Active Substance: TIOTROPIUM BROMIDE MONOHYDRATE
     Dosage: 1 DOSAGE FORM, QD
  17. ACETAMINOPHEN [Concomitant]
     Active Substance: ACETAMINOPHEN
     Dosage: 1 DOSAGE FORM, PRN (AS NECESSARY)
     Route: 048
  18. ALBUTEROL [Concomitant]
     Active Substance: ALBUTEROL
     Dosage: 1 DOSAGE FORM, PRN (AS NECESSARY)
     Route: 048
  19. METHOTREXATE [Concomitant]
     Active Substance: METHOTREXATE
     Dosage: 17.5 MILLIGRAM, QW
     Route: 058
  20. PREDNISONE [Concomitant]
     Active Substance: PREDNISONE
     Indication: Rheumatoid arthritis
     Dosage: 6 MILLIGRAM, QD
     Route: 048
  21. NOVORAPID [Concomitant]
     Active Substance: INSULIN ASPART
     Dosage: ACCORDING TO PROTOCOL
     Route: 058

REACTIONS (2)
  - Hyperkalaemia [Recovered/Resolved]
  - Hyponatraemia [Recovered/Resolved]

NARRATIVE: CASE EVENT DATE: 20220723
